FAERS Safety Report 16587350 (Version 3)
Quarter: 2021Q3

REPORT INFORMATION
  Report Type: Spontaneous
  Country: US (occurrence: US)
  Receive Date: 20190717
  Receipt Date: 20210802
  Transmission Date: 20211014
  Serious: No
  Sender: FDA-Public Use
  Company Number: US-SA-2019SA190763

PATIENT
  Age: 45 Year
  Sex: Male

DRUGS (2)
  1. AUBAGIO [Suspect]
     Active Substance: TERIFLUNOMIDE
     Indication: MULTIPLE SCLEROSIS
     Dosage: 14 MG, QD
     Route: 048
     Dates: start: 201901
  2. MULTIVITAMINS [VITAMINS NOS] [Concomitant]
     Active Substance: VITAMINS
     Dosage: UNK, QD

REACTIONS (7)
  - Abdominal distension [Recovering/Resolving]
  - Abdominal pain [Unknown]
  - Rash [Unknown]
  - Abdominal discomfort [Recovering/Resolving]
  - Dermatitis [Unknown]
  - Food allergy [Unknown]
  - Ear infection [Unknown]

NARRATIVE: CASE EVENT DATE: 2019
